FAERS Safety Report 18423439 (Version 2)
Quarter: 2020Q4

REPORT INFORMATION
  Report Type: Report from Study
  Country: US (occurrence: US)
  Receive Date: 20201023
  Receipt Date: 20201118
  Transmission Date: 20210114
  Serious: Yes (Hospitalization, Other)
  Sender: FDA-Public Use
  Company Number: US-JNJFOC-20201022762

PATIENT
  Age: 68 Year
  Sex: Female

DRUGS (1)
  1. SELEXIPAG [Suspect]
     Active Substance: SELEXIPAG
     Indication: PULMONARY ARTERIAL HYPERTENSION
     Dosage: 200/800 MCG
     Route: 048
     Dates: start: 20201010

REACTIONS (4)
  - Nausea [Unknown]
  - Urinary retention [Unknown]
  - Renal disorder [Unknown]
  - Pain in jaw [Unknown]
